FAERS Safety Report 25700452 (Version 1)
Quarter: 2025Q3

REPORT INFORMATION
  Report Type: Spontaneous
  Country: EU (occurrence: EU)
  Receive Date: 20250819
  Receipt Date: 20250819
  Transmission Date: 20251021
  Serious: Yes (Other)
  Sender: GLAND PHARMA LTD
  Company Number: EU-GLANDPHARMA-IT-2025GLNLIT01690

PATIENT
  Age: 64 Year
  Sex: Female

DRUGS (2)
  1. CISPLATIN [Suspect]
     Active Substance: CISPLATIN
     Indication: Pancreatic neuroendocrine tumour
     Route: 065
  2. ETOPOSIDE [Suspect]
     Active Substance: ETOPOSIDE
     Indication: Pancreatic neuroendocrine tumour
     Route: 065

REACTIONS (4)
  - Polyneuropathy in malignant disease [Unknown]
  - Condition aggravated [Unknown]
  - Bedridden [Unknown]
  - Product use in unapproved indication [Unknown]
